FAERS Safety Report 6566881-0 (Version None)
Quarter: 2010Q1

REPORT INFORMATION
  Report Type: 
  Country: None (occurrence: None)
  Receive Date: 20100202
  Receipt Date: 20100125
  Transmission Date: 20100710
  Serious: Yes (Other)
  Sender: FDA-Public Use
  Company Number: B0630335A

PATIENT
  Age: 58 Year
  Sex: Male

DRUGS (6)
  1. LAMOTRIGINE [Suspect]
  2. HAEMODIALYSIS [Suspect]
  3. METOPROLOL [Concomitant]
  4. AMLODIPINE [Concomitant]
  5. INSULIN [Concomitant]
  6. CLONAZEPAM [Concomitant]
     Dosage: 1MG TWICE PER DAY

REACTIONS (6)
  - BIPOLAR DISORDER [None]
  - CONDITION AGGRAVATED [None]
  - ENERGY INCREASED [None]
  - HYPOMANIA [None]
  - IRRITABILITY [None]
  - TACHYPHRENIA [None]
